FAERS Safety Report 25141429 (Version 1)
Quarter: 2025Q2

REPORT INFORMATION
  Report Type: Spontaneous
  Country: US (occurrence: None)
  Receive Date: 20250329
  Receipt Date: 20250329
  Transmission Date: 20250716
  Serious: Yes (Hospitalization)
  Sender: FDA-CTU
  Company Number: None

PATIENT
  Age: 41 Year
  Sex: Female
  Weight: 112.5 kg

DRUGS (1)
  1. GLATOPA [Suspect]
     Active Substance: GLATIRAMER ACETATE
     Indication: Multiple sclerosis
     Dates: start: 20250321, end: 20250329

REACTIONS (15)
  - Flushing [None]
  - Tinnitus [None]
  - Anxiety [None]
  - Palpitations [None]
  - Dyspnoea [None]
  - Confusional state [None]
  - Disorientation [None]
  - Anal incontinence [None]
  - Urinary incontinence [None]
  - Vomiting [None]
  - Hypoaesthesia [None]
  - Paraesthesia [None]
  - Neck pain [None]
  - Chills [None]
  - Dystonia [None]

NARRATIVE: CASE EVENT DATE: 20250329
